APPROVED DRUG PRODUCT: LASIX ONYU
Active Ingredient: FUROSEMIDE
Strength: 80MG/2.67ML (30MG/ML)
Dosage Form/Route: SOLUTION;SUBCUTANEOUS
Application: N217294 | Product #001
Applicant: SQ INNOVATION INC
Approved: Oct 7, 2025 | RLD: Yes | RS: Yes | Type: RX